FAERS Safety Report 5011792-5 (Version None)
Quarter: 2006Q2

REPORT INFORMATION
  Report Type: 
  Country: None (occurrence: None)
  Receive Date: 20060524
  Receipt Date: 20060524
  Transmission Date: 20061013
  Serious: No
  Sender: FDA-Public Use
  Company Number: None

PATIENT
  Age: 78 Year
  Sex: Male
  Weight: 79.7 kg

DRUGS (2)
  1. THALIDOMIDE [Suspect]
     Dosage: 100 MG HS PO
     Route: 048
     Dates: start: 20060210
  2. METOPROLOL [Suspect]
     Dosage: 12.5 MG BID PO [BEING HELD]
     Route: 048
     Dates: start: 20050713

REACTIONS (4)
  - DIZZINESS [None]
  - FEELING ABNORMAL [None]
  - HEART RATE DECREASED [None]
  - MENTAL DISORDER [None]
